FAERS Safety Report 7624450-5 (Version None)
Quarter: 2011Q3

REPORT INFORMATION
  Report Type: 
  Country: None (occurrence: None)
  Receive Date: 20110720
  Receipt Date: 20110714
  Transmission Date: 20111222
  Serious: Yes (Other)
  Sender: FDA-Public Use
  Company Number: US-BAYER-2011-050081

PATIENT
  Age: 18 Year
  Sex: Female

DRUGS (1)
  1. YASMIN [Suspect]
     Indication: PRODUCT USED FOR UNKNOWN INDICATION
     Dosage: UNK
     Route: 048
     Dates: start: 20060201, end: 20070501

REACTIONS (10)
  - DEEP VEIN THROMBOSIS [None]
  - PAIN [None]
  - SUPERIOR SAGITTAL SINUS THROMBOSIS [None]
  - ANHEDONIA [None]
  - VENOUS INJURY [None]
  - TRANSVERSE SINUS THROMBOSIS [None]
  - PSYCHIATRIC SYMPTOM [None]
  - ANXIETY [None]
  - FEAR [None]
  - INJURY [None]
